FAERS Safety Report 7617924-4 (Version None)
Quarter: 2011Q3

REPORT INFORMATION
  Report Type: 
  Country: None (occurrence: None)
  Receive Date: 20110718
  Receipt Date: 20110704
  Transmission Date: 20111222
  Serious: Yes (Hospitalization, Other)
  Sender: FDA-Public Use
  Company Number: PHHY2011BR60134

PATIENT
  Sex: Female

DRUGS (5)
  1. CELECOXIB [Concomitant]
     Indication: POOR PERIPHERAL CIRCULATION
     Dosage: 1 DF, BID
     Route: 048
  2. LASIX [Concomitant]
     Dosage: 1 DF, DAILY
     Route: 048
  3. ACETYLSALICYLIC ACID SRT [Concomitant]
     Dosage: 1 DF, DAILY
     Route: 048
  4. DIOVAN [Suspect]
     Indication: HYPERTENSION
     Dosage: 1 DF, DAILY
     Route: 048
  5. RASILEZ [Suspect]
     Indication: HYPERTENSION
     Dosage: 1 DF, DAILY
     Route: 048

REACTIONS (2)
  - BLOOD PRESSURE INCREASED [None]
  - BLISTER [None]
